FAERS Safety Report 5634621-5 (Version None)
Quarter: 2008Q1

REPORT INFORMATION
  Report Type: 
  Country: None (occurrence: None)
  Receive Date: 20080131
  Receipt Date: 20071217
  Transmission Date: 20080703
  Serious: No
  Sender: FDA-Public Use
  Company Number: PHEH2007US16036

PATIENT
  Age: 89 Year
  Sex: Female

DRUGS (2)
  1. TEKTURNA [Suspect]
     Dosage: 150 MG
  2. DIOVAN [Suspect]
     Dosage: 40 MG

REACTIONS (3)
  - HYPERTONIC BLADDER [None]
  - MICTURITION URGENCY [None]
  - URINE OUTPUT DECREASED [None]
